FAERS Safety Report 19428438 (Version 1)
Quarter: 2021Q2

REPORT INFORMATION
  Report Type: Report from Study
  Country: IN (occurrence: IN)
  Receive Date: 20210617
  Receipt Date: 20210617
  Transmission Date: 20210717
  Serious: Yes (Hospitalization)
  Sender: FDA-Public Use
  Company Number: NVSC2021IN129786

PATIENT
  Age: 52 Year
  Sex: Female

DRUGS (1)
  1. TAURITMO [Suspect]
     Active Substance: MIDOSTAURIN
     Indication: ACUTE MYELOID LEUKAEMIA
     Dosage: 50 MG, BID
     Route: 048
     Dates: start: 20210524, end: 20210603

REACTIONS (1)
  - Septic shock [Unknown]

NARRATIVE: CASE EVENT DATE: 20210603
